FAERS Safety Report 7643891-3 (Version None)
Quarter: 2011Q3

REPORT INFORMATION
  Report Type: 
  Country: None (occurrence: None)
  Receive Date: 20110729
  Receipt Date: 20110126
  Transmission Date: 20111222
  Serious: No
  Sender: FDA-Public Use
  Company Number: US-GLAXOSMITHKLINE-A0909477A

PATIENT
  Age: 36 Year
  Sex: Female

DRUGS (7)
  1. TREXIMET [Suspect]
     Indication: MIGRAINE
     Dosage: 2TAB AS REQUIRED
     Route: 048
     Dates: start: 20070101
  2. CHANTIX [Concomitant]
  3. KLONOPIN [Concomitant]
  4. PROVIGIL [Concomitant]
  5. NEXIUM [Concomitant]
  6. IMITREX [Suspect]
     Indication: MIGRAINE
     Dosage: 50MG AS REQUIRED
     Route: 048
     Dates: start: 20100601
  7. ULTRAM [Concomitant]

REACTIONS (1)
  - NAUSEA [None]
